FAERS Safety Report 8266114-3 (Version None)
Quarter: 2012Q1

REPORT INFORMATION
  Report Type: 
  Country: None (occurrence: None)
  Receive Date: 20120327
  Receipt Date: 20100430
  Transmission Date: 20120608
  Serious: Yes (Hospitalization, Other)
  Sender: FDA-Public Use
  Company Number: PHHY2010US28580

PATIENT
  Age: 85 Year
  Sex: Male

DRUGS (2)
  1. GLEEVEC [Suspect]
     Indication: CHRONIC MYELOID LEUKAEMIA
     Dosage: 400 MG, QD, ORAL
     Route: 048
     Dates: start: 20100325, end: 20100407
  2. VITAMIN D [Concomitant]

REACTIONS (13)
  - ATRIAL FIBRILLATION [None]
  - NAUSEA [None]
  - CARDIAC FAILURE CONGESTIVE [None]
  - PULMONARY CONGESTION [None]
  - HYPERKALAEMIA [None]
  - RENAL FAILURE [None]
  - OEDEMA PERIPHERAL [None]
  - DYSPNOEA [None]
  - ASTHENIA [None]
  - ANAEMIA [None]
  - RENAL FAILURE ACUTE [None]
  - VOMITING [None]
  - DEHYDRATION [None]
